FAERS Safety Report 8601153-1 (Version None)
Quarter: 2012Q3

REPORT INFORMATION
  Report Type: 
  Country: None (occurrence: None)
  Receive Date: 20120817
  Receipt Date: 20120816
  Transmission Date: 20120928
  Serious: Yes (Death, Hospitalization, Other)
  Sender: FDA-Public Use
  Company Number: PHHY2011AR88005

PATIENT
  Sex: Male

DRUGS (3)
  1. EXFORGE [Suspect]
     Indication: HYPERTENSION
     Dosage: 1 DF, DAILY (160 MG OF VALS AND 5 MG OF AMLO)
     Dates: start: 20110201
  2. CARVEDILOL [Concomitant]
  3. PANTOPRAZOLE [Concomitant]

REACTIONS (5)
  - DEATH [None]
  - HAEMATEMESIS [None]
  - SKIN DISCOLOURATION [None]
  - GASTROINTESTINAL HAEMORRHAGE [None]
  - FEELING ABNORMAL [None]
